FAERS Safety Report 23878608 (Version 2)
Quarter: 2024Q3

REPORT INFORMATION
  Report Type: Spontaneous
  Country: BR (occurrence: BR)
  Receive Date: 20240521
  Receipt Date: 20240709
  Transmission Date: 20241016
  Serious: Yes (Other)
  Sender: PFIZER
  Company Number: BR-PFIZER INC-PV202400065517

PATIENT
  Age: 78 Year
  Sex: Female
  Weight: 80 kg

DRUGS (6)
  1. AROMASIN [Suspect]
     Active Substance: EXEMESTANE
     Indication: Breast cancer
     Dosage: 1 TABLET PER DAY, 1X/DAY
  2. PURAN [Concomitant]
     Active Substance: LEVOTHYROXINE SODIUM
     Indication: Thyroid disorder
     Dosage: UNK
  3. ALGINAC [CYANOCOBALAMIN;DICLOFENAC SODIUM;PYRIDOXINE HYDROCHLORIDE;THI [Concomitant]
     Indication: Blood pressure abnormal
     Dosage: UNK
  4. OLMESARTAN MEDOXOMIL [Concomitant]
     Active Substance: OLMESARTAN MEDOXOMIL
     Indication: Blood pressure abnormal
     Dosage: UNK
  5. CYANOCOBALAMIN\FOLIC ACID [Concomitant]
     Active Substance: CYANOCOBALAMIN\FOLIC ACID
     Dosage: UNK
  6. DAPAGLIFLOZIN [Concomitant]
     Active Substance: DAPAGLIFLOZIN
     Indication: Nephropathy
     Dosage: UNK

REACTIONS (7)
  - Renal mass [Unknown]
  - Pancreatic mass [Unknown]
  - Renal disorder [Unknown]
  - Arthralgia [Unknown]
  - Osteoarthritis [Unknown]
  - Cough [Unknown]
  - Nasopharyngitis [Unknown]

NARRATIVE: CASE EVENT DATE: 20240101
